FAERS Safety Report 22375757 (Version 1)
Quarter: 2023Q2

REPORT INFORMATION
  Report Type: Spontaneous
  Country: US (occurrence: US)
  Receive Date: 20230527
  Receipt Date: 20230527
  Transmission Date: 20230721
  Serious: No
  Sender: FDA-Public Use
  Company Number: US-PERRIGO-22US013042

PATIENT
  Age: 77 Year
  Sex: Male
  Weight: 76.19 kg

DRUGS (1)
  1. MINOXIDIL [Suspect]
     Active Substance: MINOXIDIL
     Indication: Alopecia
     Dosage: APPROXIMATELY 1/2 CAPFUL, BID
     Route: 061
     Dates: start: 20220715, end: 202207

REACTIONS (5)
  - Application site papules [Recovered/Resolved]
  - Application site scab [Recovered/Resolved]
  - Hypersensitivity [Recovered/Resolved]
  - Application site pruritus [Recovered/Resolved]
  - Product administered at inappropriate site [Unknown]

NARRATIVE: CASE EVENT DATE: 20220701
